FAERS Safety Report 17395802 (Version 2)
Quarter: 2020Q1

REPORT INFORMATION
  Report Type: Spontaneous
  Country: CN (occurrence: CN)
  Receive Date: 20200210
  Receipt Date: 20200213
  Transmission Date: 20200409
  Serious: Yes (Death, Other)
  Sender: FDA-Public Use
  Company Number: CN-PFIZER INC-2020046594

PATIENT
  Age: 60 Year
  Sex: Female

DRUGS (6)
  1. METHYLPREDNISOLONE. [Suspect]
     Active Substance: METHYLPREDNISOLONE
     Indication: MANTLE CELL LYMPHOMA
     Dosage: 40 MG ON DAYS 1 TO 7
  2. CYCLOPHOSPHAMIDE. [Suspect]
     Active Substance: CYCLOPHOSPHAMIDE
     Indication: DOUBLE HIT LYMPHOMA
     Dosage: 0.4 G ON DAYS 2 TO 4
  3. CYCLOPHOSPHAMIDE. [Suspect]
     Active Substance: CYCLOPHOSPHAMIDE
     Indication: MANTLE CELL LYMPHOMA
  4. DOXORUBICIN [Suspect]
     Active Substance: DOXORUBICIN
     Indication: MANTLE CELL LYMPHOMA
  5. METHYLPREDNISOLONE. [Suspect]
     Active Substance: METHYLPREDNISOLONE
     Indication: DOUBLE HIT LYMPHOMA
     Dosage: 40 MG, UNK
     Dates: start: 201712
  6. DOXORUBICIN [Suspect]
     Active Substance: DOXORUBICIN
     Indication: DOUBLE HIT LYMPHOMA
     Dosage: 40 MG ON DAYS 5 TO 6

REACTIONS (1)
  - Neutropenia [Unknown]
